FAERS Safety Report 4634412-8 (Version None)
Quarter: 2005Q2

REPORT INFORMATION
  Report Type: 
  Country: None (occurrence: None)
  Receive Date: 20050411
  Receipt Date: 20050330
  Transmission Date: 20051028
  Serious: Yes (Other)
  Sender: FDA-Public Use
  Company Number: HQWYE631101APR05

PATIENT
  Age: 27 Year

DRUGS (2)
  1. EFFEXOR [Suspect]
     Dosage: 450 MG 1X PER 1 DAY
     Route: 048
  2. ZUCLOPENTHIXOL (ZUCLOPENTHIXOL,) [Suspect]
     Dosage: ^INJECTION^

REACTIONS (2)
  - HOMICIDAL IDEATION [None]
  - SUICIDAL IDEATION [None]
